FAERS Safety Report 20108749 (Version 1)
Quarter: 2021Q4

REPORT INFORMATION
  Report Type: Spontaneous
  Country: US (occurrence: US)
  Receive Date: 20211124
  Receipt Date: 20211124
  Transmission Date: 20220303
  Serious: Yes (Life-Threatening, Hospitalization, Other)
  Sender: FDA-Public Use
  Company Number: US-MYLANLABS-2021M1086662

PATIENT
  Age: 55 Year
  Sex: Male

DRUGS (7)
  1. TAMSULOSIN [Suspect]
     Active Substance: TAMSULOSIN
     Indication: Phaeochromocytoma
     Dosage: UNK
     Route: 065
  2. TAMSULOSIN [Suspect]
     Active Substance: TAMSULOSIN
     Indication: Hypertension
  3. PRAZOSIN [Suspect]
     Active Substance: PRAZOSIN
     Indication: Phaeochromocytoma
     Dosage: 1 MILLIGRAM, LOW DOSE
     Route: 065
  4. PRAZOSIN [Suspect]
     Active Substance: PRAZOSIN
     Indication: Hypertension
  5. SALINE                             /00075401/ [Concomitant]
     Indication: Orthostatic hypotension
     Dosage: UNK, INFUSION
  6. SALINE                             /00075401/ [Concomitant]
     Indication: Blood volume expansion
  7. LISINOPRIL [Concomitant]
     Active Substance: LISINOPRIL
     Indication: Hypertension
     Dosage: UNK
     Route: 065

REACTIONS (4)
  - Blood pressure systolic decreased [Recovered/Resolved]
  - Unresponsive to stimuli [Recovered/Resolved]
  - Hypotension [Recovered/Resolved]
  - Off label use [Unknown]
